FAERS Safety Report 14823754 (Version 1)
Quarter: 2018Q2

REPORT INFORMATION
  Report Type: Spontaneous
  Country: BR (occurrence: BR)
  Receive Date: 20180428
  Receipt Date: 20180428
  Transmission Date: 20180711
  Serious: Yes (Hospitalization)
  Sender: FDA-Public Use
  Company Number: BR-B.I. PHARMACEUTICALS,INC./RIDGEFIELD-2018-BI-023114

PATIENT
  Age: 58 Year
  Sex: Female

DRUGS (3)
  1. SPIRIVA RESPIMAT [Suspect]
     Active Substance: TIOTROPIUM BROMIDE
     Indication: CHRONIC OBSTRUCTIVE PULMONARY DISEASE
     Route: 065
  2. STRIVERDI RESPIMAT [Suspect]
     Active Substance: OLODATEROL HYDROCHLORIDE
     Indication: CHRONIC OBSTRUCTIVE PULMONARY DISEASE
     Route: 065
  3. METOPROLOL. [Concomitant]
     Active Substance: METOPROLOL
     Indication: ATRIAL FIBRILLATION
     Route: 065

REACTIONS (11)
  - Dyspnoea exertional [Unknown]
  - Cachexia [Unknown]
  - Palpitations [Recovered/Resolved]
  - Dry mouth [Unknown]
  - Pneumonia bacterial [Recovered/Resolved]
  - Dizziness [Unknown]
  - Presyncope [Unknown]
  - Weight decreased [Not Recovered/Not Resolved]
  - Oesophageal candidiasis [Unknown]
  - Arrhythmia [Unknown]
  - Decreased appetite [Recovered/Resolved]
